FAERS Safety Report 21313665 (Version 3)
Quarter: 2022Q4

REPORT INFORMATION
  Report Type: Report from Study
  Country: DE (occurrence: DE)
  Receive Date: 20220909
  Receipt Date: 20221125
  Transmission Date: 20230113
  Serious: Yes (Life-Threatening, Hospitalization, Other)
  Sender: FDA-Public Use
  Company Number: None

PATIENT

DRUGS (69)
  1. FLUTICASONE PROPIONATE\SALMETEROL XINAFOATE [Suspect]
     Active Substance: FLUTICASONE PROPIONATE\SALMETEROL XINAFOATE
     Indication: Chronic obstructive pulmonary disease
     Dosage: 2 DF, QD;DOSAGE REGIMEN: 1-0-1
     Route: 055
     Dates: start: 20050718
  2. FORADIL [Suspect]
     Active Substance: FORMOTEROL FUMARATE
     Indication: Chronic obstructive pulmonary disease
     Dosage: 2 DF, QD;DAILY DOSE: 2 DF DOSAGE FORM EVERY DAY
     Route: 055
     Dates: start: 20050629, end: 20050718
  3. FORADIL [Suspect]
     Active Substance: FORMOTEROL FUMARATE
     Dosage: 2 DF, QD
     Route: 050
  4. MOXIFLOXACIN HYDROCHLORIDE [Suspect]
     Active Substance: MOXIFLOXACIN HYDROCHLORIDE
     Indication: Infective exacerbation of chronic obstructive airways disease
     Dosage: 400 MG, QD; DOSAGE REGIMEN: 1-0-0,400 MG, QD
     Route: 048
     Dates: start: 20050627, end: 20050703
  5. MOXIFLOXACIN HYDROCHLORIDE [Suspect]
     Active Substance: MOXIFLOXACIN HYDROCHLORIDE
     Indication: Infection
  6. MOXIFLOXACIN HYDROCHLORIDE [Suspect]
     Active Substance: MOXIFLOXACIN HYDROCHLORIDE
     Indication: COPA syndrome
  7. BEROTEC [Suspect]
     Active Substance: FENOTEROL HYDROBROMIDE
     Indication: Chronic obstructive pulmonary disease
     Dosage: 6 DF, WE;DOSAGE REGIMEN: 2-3X/WO
     Route: 055
     Dates: start: 20040601
  8. BEROTEC [Suspect]
     Active Substance: FENOTEROL HYDROBROMIDE
     Dosage: UNK, WE
     Route: 065
     Dates: start: 20040601
  9. PREDNISOLONE [Suspect]
     Active Substance: PREDNISOLONE
     Indication: Chronic obstructive pulmonary disease
     Dosage: 15 MG, QD
     Route: 048
     Dates: start: 20050716, end: 20050719
  10. PREDNISOLONE [Suspect]
     Active Substance: PREDNISOLONE
     Dosage: 15 MG, QD
     Route: 048
     Dates: start: 20050716, end: 20050718
  11. PREDNISOLONE [Suspect]
     Active Substance: PREDNISOLONE
     Dosage: 100 MG, QD
     Route: 048
     Dates: start: 20050721, end: 20050721
  12. PREDNISOLONE [Suspect]
     Active Substance: PREDNISOLONE
     Dosage: 15 MG, QD
     Route: 048
     Dates: start: 20050721, end: 20050721
  13. NORVASC [Suspect]
     Active Substance: AMLODIPINE BESYLATE
     Indication: Cardiovascular disorder
     Dosage: 5 MG, QD
     Route: 048
     Dates: start: 20050704, end: 20050709
  14. PANTOZOL [Suspect]
     Active Substance: PANTOPRAZOLE SODIUM
     Indication: Prophylaxis against gastrointestinal ulcer
     Dosage: 40 MG, QD;DAILY DOSE: 40 MG MILLIGRAM(S) EVERY DAY
     Route: 048
     Dates: start: 20050629, end: 20050630
  15. PANTOZOL [Suspect]
     Active Substance: PANTOPRAZOLE SODIUM
     Dosage: 40 MG, QD
     Route: 048
     Dates: start: 20050703, end: 20050718
  16. CITRIC ACID MONOHYDRATE\POTASSIUM BICARBONATE\POTASSIUM CITRATE [Suspect]
     Active Substance: CITRIC ACID MONOHYDRATE\POTASSIUM BICARBONATE\POTASSIUM CITRATE
     Indication: Hypokalaemia
     Dosage: 1 DF, QD;DOSAGE REGIMEN: 1-0-0
     Route: 048
     Dates: start: 20050704, end: 20050713
  17. CLORAZEPATE DIPOTASSIUM [Suspect]
     Active Substance: CLORAZEPATE DIPOTASSIUM
     Indication: Sedative therapy
     Dosage: 5 MG;DOSAGE REGIMEN: 1-1-1-2, STOP DATE REPORTED AS 2005/07/05
     Route: 048
     Dates: start: 20050627, end: 20050702
  18. CLORAZEPATE DIPOTASSIUM [Suspect]
     Active Substance: CLORAZEPATE DIPOTASSIUM
     Dosage: 10 MG, QD
     Route: 048
     Dates: start: 20050705, end: 20050705
  19. PREDNISOLONE [Suspect]
     Active Substance: PREDNISOLONE
     Indication: Chronic obstructive pulmonary disease
     Dosage: 100 MG, QD
     Route: 048
  20. PREDNISOLONE [Suspect]
     Active Substance: PREDNISOLONE
     Dosage: 50 MG, QD
     Route: 048
     Dates: start: 20050719
  21. PREDNISOLONE [Suspect]
     Active Substance: PREDNISOLONE
     Dosage: 15 MG, QD
     Route: 048
     Dates: start: 20050716, end: 20050718
  22. PREDNISOLONE [Suspect]
     Active Substance: PREDNISOLONE
     Dosage: 20 MG, QD
     Route: 048
     Dates: start: 20050628, end: 20050705
  23. PREDNISOLONE [Suspect]
     Active Substance: PREDNISOLONE
     Dosage: 280 MG, QD;DOSAGE REGIMEN: 50 MG 0-0, 280 MG-0-0, 20 MG-0-0, 5 MG 1-2-3.
     Route: 048
     Dates: start: 20050630, end: 20050705
  24. PREDNISOLONE [Suspect]
     Active Substance: PREDNISOLONE
     Dosage: 80 MG, QD
     Route: 048
     Dates: start: 20050707, end: 20050715
  25. PREDNISOLONE [Suspect]
     Active Substance: PREDNISOLONE
     Dosage: 5 MG
     Route: 048
     Dates: start: 20050719
  26. PREDNISOLONE [Suspect]
     Active Substance: PREDNISOLONE
     Dosage: 50 MG, QD
     Route: 048
     Dates: start: 20050628, end: 20050705
  27. PREDNISOLONE [Suspect]
     Active Substance: PREDNISOLONE
     Dosage: 20 MG, QD
     Route: 048
     Dates: start: 20050719
  28. THEOPHYLLINE ANHYDROUS [Suspect]
     Active Substance: THEOPHYLLINE ANHYDROUS
     Indication: Chronic obstructive pulmonary disease
     Dosage: 200 MG, QD, INJECTION
     Route: 042
     Dates: start: 20050627, end: 20050630
  29. THEOPHYLLINE ANHYDROUS [Suspect]
     Active Substance: THEOPHYLLINE ANHYDROUS
     Dosage: 200 MG, QD
     Route: 042
     Dates: start: 20050721, end: 20050721
  30. THEOPHYLLINE ANHYDROUS [Suspect]
     Active Substance: THEOPHYLLINE ANHYDROUS
     Dosage: 200 MG, QD
     Route: 042
     Dates: start: 20050718, end: 20050718
  31. THEOPHYLLINE ANHYDROUS [Suspect]
     Active Substance: THEOPHYLLINE ANHYDROUS
     Dosage: 600 MG, QD
     Route: 048
     Dates: start: 20050704, end: 20050709
  32. HYDROCHLOROTHIAZIDE\RAMIPRIL [Suspect]
     Active Substance: HYDROCHLOROTHIAZIDE\RAMIPRIL
     Indication: Cardiovascular disorder
     Dosage: 1 DF, QD;DAILY DOSE: 1 DF DOSAGE FORM EVERY DAY
     Route: 048
     Dates: start: 20050703
  33. HYDROCHLOROTHIAZIDE\RAMIPRIL [Suspect]
     Active Substance: HYDROCHLOROTHIAZIDE\RAMIPRIL
     Dosage: 1 DF, QD
     Route: 048
     Dates: start: 20050703
  34. BECLOMETHASONE DIPROPIONATE [Suspect]
     Active Substance: BECLOMETHASONE DIPROPIONATE
     Indication: Chronic obstructive pulmonary disease
     Dosage: 2 DF, QD
     Route: 055
     Dates: start: 20050627, end: 20050715
  35. BECLOMETHASONE DIPROPIONATE [Suspect]
     Active Substance: BECLOMETHASONE DIPROPIONATE
     Dosage: 2 DF, QD
     Route: 050
  36. NITROGLYCERIN [Suspect]
     Active Substance: NITROGLYCERIN
     Indication: Hypertension
     Dosage: 50 MG;DOSAGE REGIMEN: 0-0
     Route: 042
     Dates: start: 20050702, end: 20050702
  37. BRICANYL [Suspect]
     Active Substance: TERBUTALINE SULFATE
     Indication: Dyspnoea
     Dosage: 2 DF, QD;DOSAGE REGIMEN: 1/2-0-1/2 , DOSE REPORTED AS 0.5 DF
     Route: 058
     Dates: start: 20050627, end: 20050709
  38. SPIRIVA [Suspect]
     Active Substance: TIOTROPIUM BROMIDE MONOHYDRATE
     Indication: Chronic obstructive pulmonary disease
     Dosage: 1 DF, QD;DOSAGE REGIMEN: 1-0-0
     Route: 055
     Dates: start: 20040601
  39. SPIRIVA [Suspect]
     Active Substance: TIOTROPIUM BROMIDE MONOHYDRATE
     Dosage: 1 DF, QD
     Route: 050
  40. CALCIUM CARBONATE\CHOLECALCIFEROL [Suspect]
     Active Substance: CALCIUM CARBONATE\CHOLECALCIFEROL
     Indication: Osteoporosis
     Dosage: 2 DF, QD(DOSAGE REGIMEN: 1-0-1   )
     Route: 048
     Dates: start: 20050718
  41. CALCIUM CARBONATE\CHOLECALCIFEROL [Suspect]
     Active Substance: CALCIUM CARBONATE\CHOLECALCIFEROL
     Dosage: 2 DF, QD
     Route: 048
     Dates: start: 20050719
  42. CLONIDINE [Suspect]
     Active Substance: CLONIDINE
     Indication: Alcohol withdrawal syndrome
     Dosage: 1.5 MG, QD;DOSAGE REGIMEN: 1-0-0
     Route: 042
     Dates: start: 20050628, end: 20050630
  43. CLONIDINE [Suspect]
     Active Substance: CLONIDINE
     Dosage: 1.5 MG, QD
     Route: 042
     Dates: start: 20050703, end: 20050704
  44. ISOPTIN [Suspect]
     Active Substance: VERAPAMIL HYDROCHLORIDE
     Indication: Atrial fibrillation
     Dosage: 80 MG, QD ((0-0-0-1, 1-1-0-0))
     Route: 048
     Dates: start: 20050709
  45. ACETYLCYSTEINE [Suspect]
     Active Substance: ACETYLCYSTEINE
     Indication: Productive cough
     Dosage: 600 MG, QD
     Route: 048
     Dates: start: 20050629, end: 20050712
  46. ACETYLCYSTEINE [Suspect]
     Active Substance: ACETYLCYSTEINE
     Indication: Secretion discharge
     Dosage: UNK
     Route: 065
  47. OXAZEPAM [Suspect]
     Active Substance: OXAZEPAM
     Indication: Sedation
     Dosage: UNK, QD
     Route: 048
     Dates: start: 20050708, end: 20050708
  48. OMEPRAZOLE [Suspect]
     Active Substance: OMEPRAZOLE
     Indication: Prophylaxis against gastrointestinal ulcer
     Dosage: 20 MG, QD;DRUG NAME: GASTRACID. DOSAGE REGIMEN: 0-0-1.
     Route: 048
     Dates: start: 20050718
  49. OMEPRAZOLE [Suspect]
     Active Substance: OMEPRAZOLE
     Indication: Prophylaxis
     Dosage: 20 MG, QD
     Route: 048
     Dates: start: 20050719
  50. CLOMETHIAZOLE [Suspect]
     Active Substance: CLOMETHIAZOLE
     Indication: Alcohol withdrawal syndrome
     Dosage: 2 DF, TID;DOSAGE REGIMEN: 2-2-2,2 DF, TID
     Route: 048
     Dates: start: 20050630, end: 20050703
  51. VERAPAMIL HYDROCHLORIDE [Suspect]
     Active Substance: VERAPAMIL HYDROCHLORIDE
     Indication: Atrial fibrillation
     Dosage: 240 MG, QD;DOSAGE REGIMEN: 1-0-0-0, 1-1-0-1
     Route: 048
     Dates: start: 20050718
  52. VERAPAMIL HYDROCHLORIDE [Suspect]
     Active Substance: VERAPAMIL HYDROCHLORIDE
     Dosage: 80 MG
     Route: 048
     Dates: start: 20050718
  53. MARCUMAR [Suspect]
     Active Substance: PHENPROCOUMON
     Indication: Atrial fibrillation
     Dosage: UNK;ACCORDING INR
     Route: 048
     Dates: start: 20050710
  54. HEPARIN SODIUM [Suspect]
     Active Substance: HEPARIN SODIUM
     Indication: Thrombosis prophylaxis
     Dosage: 25000 IU, QD;25000 IU, DOSAGE REGIMEN: 1-0-0
     Route: 058
     Dates: start: 20050627, end: 20050709
  55. CHOLECALCIFEROL [Suspect]
     Active Substance: CHOLECALCIFEROL
     Indication: Osteoporosis
     Dosage: 1000 IU, QD
     Route: 048
     Dates: start: 20050717, end: 20050717
  56. CHOLECALCIFEROL [Suspect]
     Active Substance: CHOLECALCIFEROL
     Dosage: 1000 IU, QD
     Route: 048
     Dates: start: 20050718, end: 20050718
  57. DIGITOXIN [Suspect]
     Active Substance: DIGITOXIN
     Indication: Coronary artery disease
     Dosage: 0.1 MG, QD
     Route: 048
     Dates: start: 20050708
  58. AMBROXOL [Suspect]
     Active Substance: AMBROXOL
     Indication: Unevaluable event
     Dosage: 28 GTT, QD;DAILY DOSE: 28 GTT DROP(S) EVERY DAY
     Route: 048
     Dates: start: 20050701, end: 20050718
  59. AMBROXOL [Suspect]
     Active Substance: AMBROXOL
     Indication: Secretion discharge
     Dosage: UNK
     Route: 065
  60. FUROSEMIDE [Suspect]
     Active Substance: FUROSEMIDE
     Indication: Hypertension
     Dosage: 40 MG, QD;DAILY DOSE: 40 MG MILLIGRAM(S) EVERY DAY
     Route: 048
     Dates: start: 20050707
  61. PHENPROCOUMON [Suspect]
     Active Substance: PHENPROCOUMON
     Indication: Atrial fibrillation
     Dosage: UNK
     Route: 048
     Dates: start: 20050710
  62. RAMIPRIL [Suspect]
     Active Substance: RAMIPRIL
     Indication: Cardiovascular disorder
     Dosage: UNK, QD
     Route: 048
     Dates: start: 20050630, end: 20050702
  63. HYDROCHLOROTHIAZIDE\RAMIPRIL [Suspect]
     Active Substance: HYDROCHLOROTHIAZIDE\RAMIPRIL
     Indication: Coronary artery disease
     Dosage: 5/25
     Route: 048
     Dates: start: 20050703
  64. INSULIN ASPART [Suspect]
     Active Substance: INSULIN ASPART
     Indication: Blood glucose abnormal
     Dosage: UNK
     Route: 065
     Dates: start: 20050703, end: 20050703
  65. RINGER-LOESUNG [Concomitant]
     Indication: Product used for unknown indication
     Dosage: 1000 ML, QD
     Route: 065
     Dates: start: 20050627, end: 20050703
  66. RINGER-LOESUNG [Concomitant]
     Indication: Unevaluable event
     Dosage: UNK
     Route: 065
  67. RINGER-LOESUNG [Concomitant]
     Indication: Hypovolaemia
  68. HALOPERIDOL [Concomitant]
     Active Substance: HALOPERIDOL
     Indication: Sedation
     Dosage: 10 GTT, QD;DRUG NAME: HALOPERIDOL TROPFEN. DOSAGE REGIMEN: 10-0-0
     Route: 048
     Dates: start: 20050629, end: 20050630
  69. HALOPERIDOL [Concomitant]
     Active Substance: HALOPERIDOL
     Dosage: 10 GTT, QD
     Route: 048
     Dates: start: 20050703, end: 20050703

REACTIONS (8)
  - Pruritus [Unknown]
  - Blister [Unknown]
  - Nikolsky^s sign [Unknown]
  - Toxic epidermal necrolysis [Recovered/Resolved]
  - Pyrexia [Unknown]
  - Stevens-Johnson syndrome [Recovered/Resolved]
  - Toxic epidermal necrolysis [Recovered/Resolved]
  - Skin lesion [Unknown]

NARRATIVE: CASE EVENT DATE: 20050721
